FAERS Safety Report 5627014-8 (Version None)
Quarter: 2008Q1

REPORT INFORMATION
  Report Type: 
  Country: None (occurrence: None)
  Receive Date: 20080117
  Receipt Date: 20071030
  Transmission Date: 20080703
  Serious: Yes (Hospitalization)
  Sender: FDA-Public Use
  Company Number: E2020-01794-SPO-US

PATIENT
  Sex: Female

DRUGS (6)
  1. ARICEPT [Suspect]
     Indication: DEMENTIA
     Dosage: 10 MG, 1 IN 1 D, ORAL
     Route: 048
     Dates: start: 20070801, end: 20071010
  2. NAMENDA [Suspect]
     Indication: DEMENTIA
     Dosage: STANDARD TITRATION 15 MG QD TO 10 MG BID, ORAL
     Route: 048
     Dates: start: 20050101
  3. LOVENOX [Concomitant]
  4. ASPIRIN [Concomitant]
  5. BUSPAR [Concomitant]
  6. MULTIVITAMIN [Concomitant]

REACTIONS (1)
  - SYNCOPE [None]
